FAERS Safety Report 12778900 (Version 1)
Quarter: 2016Q3

REPORT INFORMATION
  Report Type: Spontaneous
  Country: US (occurrence: US)
  Receive Date: 20160926
  Receipt Date: 20160926
  Transmission Date: 20161109
  Serious: No
  Sender: FDA-Public Use
  Company Number: US-JAZZ-2016-US-011056

PATIENT
  Sex: Female

DRUGS (30)
  1. XYREM [Suspect]
     Active Substance: SODIUM OXYBATE
     Indication: INSOMNIA
     Dosage: 2.25 G, BID
     Route: 048
     Dates: start: 201605, end: 201605
  2. XYREM [Suspect]
     Active Substance: SODIUM OXYBATE
     Dosage: 2 G, TID
     Route: 048
     Dates: start: 201606
  3. AMANTADINE [Concomitant]
     Active Substance: AMANTADINE
  4. LIDOCAINE HCL [Concomitant]
     Active Substance: LIDOCAINE HYDROCHLORIDE
  5. OXYCONTIN [Concomitant]
     Active Substance: OXYCODONE HYDROCHLORIDE
  6. XYREM [Suspect]
     Active Substance: SODIUM OXYBATE
     Dosage: DOSE ADJUSTMENTS
     Route: 048
     Dates: start: 201606, end: 201606
  7. XANAX [Concomitant]
     Active Substance: ALPRAZOLAM
  8. MELATONIN [Concomitant]
     Active Substance: MELATONIN
  9. TOPAMAX [Concomitant]
     Active Substance: TOPIRAMATE
  10. CYANOCOBALAMIN. [Concomitant]
     Active Substance: CYANOCOBALAMIN
  11. VITAMIN D3 [Concomitant]
     Active Substance: CHOLECALCIFEROL
  12. SODIUM CHLORIDE. [Concomitant]
     Active Substance: SODIUM CHLORIDE
  13. FENTANYL. [Concomitant]
     Active Substance: FENTANYL
  14. SOMA [Concomitant]
     Active Substance: CARISOPRODOL
  15. CYMBALTA [Concomitant]
     Active Substance: DULOXETINE HYDROCHLORIDE
  16. FOLIC ACID. [Concomitant]
     Active Substance: FOLIC ACID
  17. MULTIVITAMINS [Concomitant]
     Active Substance: VITAMINS
  18. CORTEF [Concomitant]
     Active Substance: HYDROCORTISONE
  19. LYRICA [Concomitant]
     Active Substance: PREGABALIN
  20. OXYCODONE HYDROCHLORIDE. [Concomitant]
     Active Substance: OXYCODONE HYDROCHLORIDE
  21. TEMAZEPAM. [Concomitant]
     Active Substance: TEMAZEPAM
  22. SONATA [Concomitant]
     Active Substance: ZALEPLON
  23. VITAMIN B12 [Concomitant]
     Active Substance: CYANOCOBALAMIN
  24. FLUORODEOXYGLUCOSE [Concomitant]
  25. LEVOTHYROXINE SODIUM. [Concomitant]
     Active Substance: LEVOTHYROXINE SODIUM
  26. SEROQUEL [Concomitant]
     Active Substance: QUETIAPINE FUMARATE
  27. REMERON [Concomitant]
     Active Substance: MIRTAZAPINE
  28. HALOPERIDOL. [Concomitant]
     Active Substance: HALOPERIDOL
  29. NICORETTE [Concomitant]
     Active Substance: NICOTINE
  30. BENZTROPINE MESILATE [Concomitant]
     Active Substance: BENZTROPINE MESYLATE

REACTIONS (3)
  - Tremor [Unknown]
  - Nausea [Unknown]
  - Intentional product use issue [Unknown]

NARRATIVE: CASE EVENT DATE: 2016
